FAERS Safety Report 11868779 (Version 3)
Quarter: 2017Q1

REPORT INFORMATION
  Report Type: Spontaneous
  Country: US (occurrence: US)
  Receive Date: 20151225
  Receipt Date: 20170213
  Transmission Date: 20170428
  Serious: Yes (Hospitalization, Other)
  Sender: FDA-Public Use
  Company Number: US-ABBVIE-15K-163-1524142-00

PATIENT
  Age: 60 Year
  Sex: Female
  Weight: 68.1 kg

DRUGS (17)
  1. ZOLOFT [Concomitant]
     Active Substance: SERTRALINE HYDROCHLORIDE
     Indication: DEPRESSION
  2. MECLOMEN [Concomitant]
     Active Substance: MECLOFENAMATE SODIUM
     Indication: PSORIATIC ARTHROPATHY
     Dates: end: 2014
  3. POTASSIUM [Concomitant]
     Active Substance: POTASSIUM
     Indication: PRODUCT USED FOR UNKNOWN INDICATION
  4. FOLIC ACID. [Concomitant]
     Active Substance: FOLIC ACID
     Indication: PRODUCT USED FOR UNKNOWN INDICATION
  5. HUMIRA [Suspect]
     Active Substance: ADALIMUMAB
     Indication: PSORIATIC ARTHROPATHY
     Route: 058
     Dates: start: 2008, end: 201503
  6. MECLOMEN [Concomitant]
     Active Substance: MECLOFENAMATE SODIUM
     Indication: PAIN
  7. HYZAAR [Concomitant]
     Active Substance: HYDROCHLOROTHIAZIDE\LOSARTAN POTASSIUM
     Indication: HYPERTENSION
  8. MOBIC [Concomitant]
     Active Substance: MELOXICAM
     Indication: PAIN
  9. MECLOMEN [Concomitant]
     Active Substance: MECLOFENAMATE SODIUM
     Indication: MUSCULOSKELETAL STIFFNESS
  10. CARTIA XT [Concomitant]
     Active Substance: DILTIAZEM HYDROCHLORIDE
     Indication: HYPERTENSION
  11. MOBIC [Concomitant]
     Active Substance: MELOXICAM
     Indication: MUSCULOSKELETAL STIFFNESS
  12. VITAMIN D [Concomitant]
     Active Substance: CHOLECALCIFEROL
     Indication: PRODUCT USED FOR UNKNOWN INDICATION
  13. PROTONIX [Concomitant]
     Active Substance: PANTOPRAZOLE SODIUM
     Indication: GASTROOESOPHAGEAL REFLUX DISEASE
  14. OTEZLA [Suspect]
     Active Substance: APREMILAST
     Indication: PSORIATIC ARTHROPATHY
     Route: 065
     Dates: start: 201506, end: 201507
  15. OTEZLA [Suspect]
     Active Substance: APREMILAST
     Route: 065
     Dates: start: 2015
  16. MOBIC [Concomitant]
     Active Substance: MELOXICAM
     Indication: PSORIATIC ARTHROPATHY
  17. VITAMIN B [Concomitant]
     Active Substance: VITAMIN B
     Indication: PRODUCT USED FOR UNKNOWN INDICATION

REACTIONS (18)
  - Hypoaesthesia [Recovered/Resolved]
  - Demyelination [Not Recovered/Not Resolved]
  - CSF oligoclonal band present [Not Recovered/Not Resolved]
  - Agitation [Recovering/Resolving]
  - Neurogenic bladder [Recovering/Resolving]
  - Balance disorder [Recovering/Resolving]
  - Muscular weakness [Recovering/Resolving]
  - Dysarthria [Recovering/Resolving]
  - Demyelination [Not Recovered/Not Resolved]
  - VIth nerve paralysis [Recovering/Resolving]
  - Fatigue [Not Recovered/Not Resolved]
  - Brain stem syndrome [Not Recovered/Not Resolved]
  - Unevaluable event [Recovering/Resolving]
  - Drooling [Recovered/Resolved]
  - Muscular weakness [Not Recovered/Not Resolved]
  - Neuromyelitis optica spectrum disorder [Unknown]
  - Diplopia [Recovering/Resolving]
  - Feeling abnormal [Recovering/Resolving]

NARRATIVE: CASE EVENT DATE: 2015
